FAERS Safety Report 5974967-4 (Version None)
Quarter: 2008Q4

REPORT INFORMATION
  Report Type: 
  Country: None (occurrence: None)
  Receive Date: 20081128
  Receipt Date: 20081121
  Transmission Date: 20090506
  Serious: Yes (Other)
  Sender: FDA-Public Use
  Company Number: 20631

PATIENT
  Sex: Male

DRUGS (3)
  1. LEUCOVORIN CALCIUM [Suspect]
     Indication: COLORECTAL CANCER STAGE III
  2. FLUOROURACIL [Suspect]
     Indication: COLORECTAL CANCER STAGE III
  3. OXALIPLATIN [Suspect]
     Indication: COLORECTAL CANCER STAGE III

REACTIONS (2)
  - BONE MARROW FAILURE [None]
  - VENOOCCLUSIVE LIVER DISEASE [None]
